FAERS Safety Report 20822412 (Version 1)
Quarter: 2022Q2

REPORT INFORMATION
  Report Type: Spontaneous
  Country: US (occurrence: US)
  Receive Date: 20220512
  Receipt Date: 20220512
  Transmission Date: 20220721
  Serious: Yes (Other)
  Sender: FDA-Public Use
  Company Number: US-MYLANLABS-2022M1034491

PATIENT
  Age: 58 Year
  Sex: Female

DRUGS (12)
  1. CLOBETASOL [Suspect]
     Active Substance: CLOBETASOL
     Indication: Pustular psoriasis
     Dosage: UNK
     Route: 061
  2. TRIAMCINOLONE [Suspect]
     Active Substance: TRIAMCINOLONE
     Indication: Pustular psoriasis
     Dosage: UNK
     Route: 061
  3. HYDROCORTISONE [Suspect]
     Active Substance: HYDROCORTISONE
     Indication: Pustular psoriasis
     Dosage: UNK
     Route: 061
  4. PREDNISONE [Suspect]
     Active Substance: PREDNISONE
     Indication: Pustular psoriasis
     Dosage: 40 MILLIGRAM
     Route: 048
  5. PREDNISONE [Suspect]
     Active Substance: PREDNISONE
     Dosage: 20 MILLIGRAM
     Route: 048
  6. PREDNISONE [Suspect]
     Active Substance: PREDNISONE
     Dosage: 7.5 MILLIGRAM, ONCE, TAPERED TO 7.5MG DAILY.
     Route: 048
  7. NIVOLUMAB [Concomitant]
     Active Substance: NIVOLUMAB
     Indication: Oesophageal adenocarcinoma stage IV
     Dosage: 240 MILLIGRAM, INFUSION
     Route: 065
  8. LEUCOVORIN [Concomitant]
     Active Substance: LEUCOVORIN
     Indication: Oesophageal adenocarcinoma stage IV
     Dosage: AS PART OF FOLFOX REGIMEN
     Route: 065
  9. FLUOROURACIL [Concomitant]
     Active Substance: FLUOROURACIL
     Indication: Oesophageal adenocarcinoma stage IV
     Dosage: AS PART OF FOLFOX REGIMEN
     Route: 065
  10. OXALIPLATIN [Concomitant]
     Active Substance: OXALIPLATIN
     Indication: Oesophageal adenocarcinoma stage IV
     Dosage: AS PART OF FOLFOX REGIMEN
     Route: 065
  11. ZINC SULFATE [Concomitant]
     Active Substance: ZINC SULFATE
     Indication: Supplementation therapy
     Dosage: UNK
     Route: 065
  12. ACITRETIN [Concomitant]
     Active Substance: ACITRETIN
     Indication: Pustular psoriasis
     Dosage: 20 MILLIGRAM
     Route: 065

REACTIONS (2)
  - Drug ineffective [Unknown]
  - Rebound psoriasis [Unknown]
